FAERS Safety Report 11672668 (Version 1)
Quarter: 2015Q4

REPORT INFORMATION
  Report Type: Spontaneous
  Country: FR (occurrence: FR)
  Receive Date: 20151028
  Receipt Date: 20151028
  Transmission Date: 20160304
  Serious: Yes (Hospitalization)
  Sender: FDA-Public Use
  Company Number: FR-BAYER-2015-454389

PATIENT
  Age: 88 Year
  Sex: Female

DRUGS (9)
  1. CIPROFLOXACIN HYDROCHLORIDE. [Suspect]
     Active Substance: CIPROFLOXACIN HYDROCHLORIDE
     Dosage: 250 MG, BID
     Route: 048
  2. MACROGOL 3350 [Suspect]
     Active Substance: POLYETHYLENE GLYCOL 3350
     Dosage: 3 DF, QD
  3. ESOMEPRAZOLE [Suspect]
     Active Substance: ESOMEPRAZOLE
     Dosage: 20 MG, QD
     Route: 048
  4. ALLOPURINOL. [Suspect]
     Active Substance: ALLOPURINOL
     Route: 048
  5. INNOHEP [Suspect]
     Active Substance: TINZAPARIN SODIUM
     Dosage: 0.5 ML, QD
     Route: 058
  6. REPAGLINIDE. [Suspect]
     Active Substance: REPAGLINIDE
     Dosage: UNK
     Route: 048
  7. AUGMENTIN [Suspect]
     Active Substance: AMOXICILLIN\CLAVULANATE POTASSIUM
     Dosage: 1 G, TID
     Route: 048
  8. LANTUS [Suspect]
     Active Substance: INSULIN GLARGINE
     Dosage: UNK
     Route: 058
  9. LERCANIDIPINE [Suspect]
     Active Substance: LERCANIDIPINE
     Dosage: 10 MG, UNK
     Route: 048

REACTIONS (4)
  - Hypotension [None]
  - Rash generalised [None]
  - Drug interaction [None]
  - Drug hypersensitivity [None]
